FAERS Safety Report 11198308 (Version 2)
Quarter: 2017Q1

REPORT INFORMATION
  Report Type: Spontaneous
  Country: ES (occurrence: ES)
  Receive Date: 20150618
  Receipt Date: 20170329
  Transmission Date: 20170428
  Serious: Yes (Hospitalization, Other)
  Sender: FDA-Public Use
  Company Number: ES-LUPIN PHARMACEUTICALS INC.-2015-01279

PATIENT
  Age: 25 Year
  Sex: Female
  Weight: 48 kg

DRUGS (8)
  1. ETHAMBUTOL [Concomitant]
     Active Substance: ETHAMBUTOL HYDROCHLORIDE
     Dosage: 15 MG/KG,UNK,UNKNOWN
     Route: 065
     Dates: start: 201203
  2. RIFAMPICIN [Suspect]
     Active Substance: RIFAMPIN
     Indication: PULMONARY TUBERCULOSIS
     Dosage: UNK UNK,UNK,UNKNOWN
     Route: 065
  3. ISONIAZID. [Concomitant]
     Active Substance: ISONIAZID
     Dosage: 5 MG/KG,UNK,UNKNOWN
     Route: 065
     Dates: start: 201203
  4. ETHAMBUTOL [Concomitant]
     Active Substance: ETHAMBUTOL HYDROCHLORIDE
     Indication: PULMONARY TUBERCULOSIS
     Dosage: UNK UNK,UNK,UNKNOWN
     Route: 065
     Dates: start: 200801
  5. PYRAZINAMIDE. [Concomitant]
     Active Substance: PYRAZINAMIDE
     Dosage: 25 MG/KG,UNK,UNKNOWN
     Route: 065
     Dates: start: 201203
  6. ISONIAZID. [Concomitant]
     Active Substance: ISONIAZID
     Indication: PULMONARY TUBERCULOSIS
     Dosage: UNK UNK,UNK,UNKNOWN
     Route: 065
     Dates: start: 200801
  7. PYRAZINAMIDE. [Concomitant]
     Active Substance: PYRAZINAMIDE
     Indication: PULMONARY TUBERCULOSIS
     Dosage: UNK UNK,UNK,UNKNOWN
     Route: 065
     Dates: start: 200801
  8. RIFAMPICIN [Suspect]
     Active Substance: RIFAMPIN
     Dosage: 10 MG/KG,UNK,UNKNOWN
     Route: 065

REACTIONS (1)
  - Haemolytic anaemia [Recovered/Resolved]

NARRATIVE: CASE EVENT DATE: 2012
